FAERS Safety Report 5606975-7 (Version None)
Quarter: 2008Q1

REPORT INFORMATION
  Report Type: 
  Country: None (occurrence: None)
  Receive Date: 20080111
  Receipt Date: 20070716
  Transmission Date: 20080703
  Serious: Yes (Other)
  Sender: FDA-Public Use
  Company Number: HQWYE343622JUL04

PATIENT
  Age: 59 Year
  Sex: Female

DRUGS (4)
  1. PREMPRO [Suspect]
     Dates: start: 19960101, end: 20010201
  2. OGEN [Suspect]
     Dates: start: 19930101, end: 19930101
  3. PREMARIN [Suspect]
     Dates: start: 19920101, end: 19960101
  4. PROVERA [Suspect]
     Dates: start: 19920101, end: 19960101

REACTIONS (1)
  - BREAST CANCER [None]
